FAERS Safety Report 5321555-9 (Version None)
Quarter: 2007Q1

REPORT INFORMATION
  Report Type: 
  Country: None (occurrence: None)
  Receive Date: 20070215
  Receipt Date: 20061024
  Transmission Date: 20070707
  Serious: No
  Sender: FDA-Public Use
  Company Number: 200616279BWH

PATIENT
  Age: 81 Year
  Sex: Male

DRUGS (12)
  1. NEXAVAR [Suspect]
     Indication: METASTATIC RENAL CELL CARCINOMA
     Dosage: 400 MG, BID; ORAL
     Route: 048
     Dates: start: 20061001, end: 20061023
  2. NIFEDIPINE [Concomitant]
  3. ALPRAZOLAM [Concomitant]
  4. ZOCOR [Concomitant]
  5. TERAZOSIN HCL [Concomitant]
  6. LASIX [Concomitant]
  7. ASPIRIN [Concomitant]
  8. METOPROLOL SUCCINATE [Concomitant]
  9. MULTI-VITAMIN [Concomitant]
  10. RANITIDINE [Concomitant]
  11. STOOL SOFTENER [Concomitant]
  12. OMEGA 500 [Concomitant]

REACTIONS (4)
  - BLISTER [None]
  - BURNING SENSATION [None]
  - ERYTHEMA [None]
  - PAIN IN EXTREMITY [None]
